FAERS Safety Report 21474148 (Version 7)
Quarter: 2023Q1

REPORT INFORMATION
  Report Type: Report from Study
  Country: US (occurrence: US)
  Receive Date: 20221018
  Receipt Date: 20230217
  Transmission Date: 20230417
  Serious: Yes (Hospitalization, Other)
  Sender: FDA-Public Use
  Company Number: US-BoehringerIngelheim-2022-BI-160522

PATIENT
  Sex: Male

DRUGS (4)
  1. OFEV [Suspect]
     Active Substance: NINTEDANIB
     Indication: Idiopathic pulmonary fibrosis
     Route: 048
     Dates: start: 20220301, end: 202208
  2. OFEV [Suspect]
     Active Substance: NINTEDANIB
     Route: 048
     Dates: start: 20220310
  3. OFEV [Suspect]
     Active Substance: NINTEDANIB
     Route: 048
     Dates: start: 20220906, end: 20221204
  4. IMODIUM [Suspect]
     Active Substance: LOPERAMIDE HYDROCHLORIDE
     Indication: Diarrhoea

REACTIONS (24)
  - Cerebrovascular accident [Unknown]
  - Skin cancer [Recovered/Resolved]
  - Diarrhoea [Unknown]
  - Blood urine present [Unknown]
  - Headache [Recovered/Resolved]
  - Rhinorrhoea [Recovered/Resolved]
  - Productive cough [Recovered/Resolved]
  - Diarrhoea [Recovered/Resolved]
  - Road traffic accident [Unknown]
  - Diarrhoea [Recovered/Resolved]
  - Scratch [Unknown]
  - Visual field defect [Unknown]
  - Constipation [Recovered/Resolved]
  - Abdominal distension [Recovered/Resolved]
  - Dyspnoea [Recovered/Resolved]
  - Weight decreased [Recovered/Resolved]
  - Asthenia [Recovered/Resolved]
  - Dehydration [Recovered/Resolved]
  - Upper-airway cough syndrome [Recovered/Resolved]
  - Cough [Recovered/Resolved]
  - Headache [Recovered/Resolved]
  - Abdominal pain upper [Recovered/Resolved]
  - Tunnel vision [Unknown]
  - Constipation [Unknown]
